FAERS Safety Report 7911147-7 (Version None)
Quarter: 2011Q4

REPORT INFORMATION
  Report Type: 
  Country: None (occurrence: None)
  Receive Date: 20111109
  Receipt Date: 20111028
  Transmission Date: 20120403
  Serious: Yes (Other)
  Sender: FDA-Public Use
  Company Number: DKLU1074564

PATIENT
  Sex: Male

DRUGS (2)
  1. ONFI [Suspect]
     Indication: PRODUCT USED FOR UNKNOWN INDICATION
     Dosage: 10 MG MILLIGRAM(S), 2 IN 1 D, ORAL
     Route: 048
  2. PHENYTOIN [Concomitant]

REACTIONS (3)
  - RENAL DISORDER [None]
  - DIZZINESS [None]
  - HYPERTENSION [None]
